FAERS Safety Report 18798129 (Version 2)
Quarter: 2021Q1

REPORT INFORMATION
  Report Type: Spontaneous
  Country: US (occurrence: US)
  Receive Date: 20210128
  Receipt Date: 20210210
  Transmission Date: 20210419
  Serious: No
  Sender: FDA-Public Use
  Company Number: US-TOLMAR, INC.-21US025014

PATIENT

DRUGS (1)
  1. ELIGARD [Suspect]
     Active Substance: LEUPROLIDE ACETATE
     Indication: PRODUCT USED FOR UNKNOWN INDICATION
     Dosage: 22.5 MG
     Route: 065
     Dates: start: 20201028

REACTIONS (4)
  - Drug ineffective [Unknown]
  - Prostatic specific antigen abnormal [Unknown]
  - Medication error [Unknown]
  - Blood testosterone abnormal [Unknown]

NARRATIVE: CASE EVENT DATE: 20201028
